FAERS Safety Report 5524760-1 (Version None)
Quarter: 2007Q4

REPORT INFORMATION
  Report Type: 
  Country: None (occurrence: None)
  Receive Date: 20071123
  Receipt Date: 20071116
  Transmission Date: 20080405
  Serious: Yes (Hospitalization, Other)
  Sender: FDA-Public Use
  Company Number: PHBS2007BR19510

PATIENT
  Age: 73 Year
  Sex: Female

DRUGS (2)
  1. FEMARA [Suspect]
     Indication: BREAST CANCER
     Dosage: 2.5 MG/D
     Route: 048
     Dates: start: 20050101, end: 20061201
  2. FEMARA [Suspect]
     Dosage: 2.5 MG/D
     Route: 048
     Dates: start: 20070201

REACTIONS (6)
  - ASTHENIA [None]
  - DEMENTIA [None]
  - DRUG RESISTANCE [None]
  - ESCHAR [None]
  - INTESTINAL OBSTRUCTION [None]
  - MALNUTRITION [None]
